FAERS Safety Report 9404749 (Version 1)
Quarter: 2013Q3

REPORT INFORMATION
  Report Type: Spontaneous
  Country: US (occurrence: None)
  Receive Date: 20130716
  Receipt Date: 20130716
  Transmission Date: 20140515
  Serious: Yes (Disabling)
  Sender: FDA-Public Use
  Company Number: None

PATIENT
  Age: 82 Year
  Sex: Female
  Weight: 62.6 kg

DRUGS (1)
  1. ALCON AZOPT [Suspect]
     Indication: GLAUCOMA
     Dosage: 15 ML ?1 DROP INTO BOTH EYES ?TWICE DAILY ?DROPPED INTO THE EYES
     Dates: start: 20130615, end: 20130703

REACTIONS (3)
  - Hypertension [None]
  - Discomfort [None]
  - Malaise [None]
